FAERS Safety Report 15450058 (Version 1)
Quarter: 2018Q3

REPORT INFORMATION
  Report Type: Spontaneous
  Country: US (occurrence: US)
  Receive Date: 20180927
  Receipt Date: 20180927
  Transmission Date: 20181010
  Serious: Yes (Life-Threatening, Hospitalization, Disabling)
  Sender: FDA-Public Use
  Company Number: None

PATIENT
  Age: 64 Year
  Sex: Male
  Weight: 80.74 kg

DRUGS (16)
  1. COD LIVER OIL [Concomitant]
     Active Substance: COD LIVER OIL
  2. ASPRIN [Concomitant]
     Active Substance: ASPIRIN
  3. POTASSIUM [Concomitant]
     Active Substance: POTASSIUM
  4. MILK THISTLE [Concomitant]
     Active Substance: DIETARY SUPPLEMENT\HERBALS\MILK THISTLE
  5. SOVERIGN SILVER [Concomitant]
  6. DILANTIN [Suspect]
     Active Substance: PHENYTOIN
     Indication: DRUG ADMINISTRATION ERROR
  7. MSM [Concomitant]
     Active Substance: DIMETHYL SULFONE
  8. HAWAI AXTACANTAIN [Concomitant]
  9. BERRIES [Concomitant]
  10. FLAXSEED [Concomitant]
     Active Substance: FLAX SEED
  11. PABA [Concomitant]
     Active Substance: AMINOBENZOIC ACID
  12. CORDYEPS [Concomitant]
  13. GARLIC OIL [Concomitant]
     Active Substance: GARLIC OIL
  14. WEST WHEAT GRASS [Concomitant]
     Active Substance: PASCOPYRUM SMITHII POLLEN
  15. ACAI BERRIES [Concomitant]
  16. LISINOPRIL. [Concomitant]
     Active Substance: LISINOPRIL

REACTIONS (1)
  - Drug prescribing error [None]
